FAERS Safety Report 4298557-7 (Version None)
Quarter: 2004Q1

REPORT INFORMATION
  Report Type: 
  Country: None (occurrence: None)
  Receive Date: 20040126
  Receipt Date: 20030918
  Transmission Date: 20041129
  Serious: No
  Sender: FDA-Public Use
  Company Number: USA030947615

PATIENT
  Age: 7 Year
  Sex: Male
  Weight: 17 kg

DRUGS (4)
  1. STRATTERA [Suspect]
     Indication: ATTENTION DEFICIT/HYPERACTIVITY DISORDER
     Dosage: 40 MG/DAY
     Dates: start: 20030701
  2. RITALIN [Concomitant]
  3. CLONIDINE [Concomitant]
  4. MULTIVITAMINS NOS (MULTIVITAMINS NOS) [Concomitant]

REACTIONS (8)
  - CRYING [None]
  - DRUG EFFECT DECREASED [None]
  - DRUG INEFFECTIVE [None]
  - DYSPEPSIA [None]
  - IRRITABILITY [None]
  - MOOD SWINGS [None]
  - PRESCRIBED OVERDOSE [None]
  - VOMITING [None]
